FAERS Safety Report 5884038-3 (Version None)
Quarter: 2008Q3

REPORT INFORMATION
  Report Type: 
  Country: None (occurrence: None)
  Receive Date: 20080911
  Receipt Date: 20080827
  Transmission Date: 20090109
  Serious: Yes (Hospitalization)
  Sender: FDA-Public Use
  Company Number: 2008-182718-NL

PATIENT
  Age: 86 Year
  Sex: Female

DRUGS (2)
  1. MIRTAZAPINE [Suspect]
  2. OXAZEPAM [Suspect]

REACTIONS (3)
  - FALL [None]
  - HYPERKALAEMIA [None]
  - HYPOTENSION [None]
